FAERS Safety Report 9290732 (Version 3)
Quarter: 2013Q2

REPORT INFORMATION
  Report Type: Report from Study
  Country: US (occurrence: US)
  Receive Date: 20130515
  Receipt Date: 20130524
  Transmission Date: 20140414
  Serious: Yes (Other)
  Sender: FDA-Public Use
  Company Number: US-AMGEN-USACT2013034221

PATIENT
  Age: 62 Year
  Sex: Female
  Weight: 87.53 kg

DRUGS (4)
  1. DENOSUMAB [Suspect]
     Indication: OSTEOPOROSIS POSTMENOPAUSAL
     Dosage: 60 MG, Q6MO
     Route: 058
     Dates: start: 20101215, end: 20121212
  2. TERIPARATIDE [Concomitant]
     Indication: OSTEOPOROSIS POSTMENOPAUSAL
     Dosage: 20 MUG, QD
     Route: 058
     Dates: start: 20101215
  3. LEVOTHYROXINE [Concomitant]
     Dosage: 50 MUG, QD
  4. LISINOPRIL [Concomitant]
     Dosage: 20 MG, QD

REACTIONS (1)
  - Intraductal proliferative breast lesion [Recovering/Resolving]
